FAERS Safety Report 10787475 (Version 1)
Quarter: 2015Q1

REPORT INFORMATION
  Report Type: Spontaneous
  Country: FR (occurrence: FR)
  Receive Date: 20150212
  Receipt Date: 20150212
  Transmission Date: 20150721
  Serious: Yes (Hospitalization, Other)
  Sender: FDA-Public Use
  Company Number: FR-AUROBINDO-AUR-APL-2015-01094

PATIENT
  Age: 83 Year
  Sex: Female

DRUGS (6)
  1. PREVISCAN                          /00789001/ [Concomitant]
     Active Substance: FLUINDIONE
     Indication: PULMONARY EMBOLISM
     Dosage: 20 MG, UNK
     Route: 048
     Dates: start: 20141121
  2. MODOPAR [Concomitant]
     Active Substance: BENSERAZIDE HYDROCHLORIDE\LEVODOPA
     Indication: PRODUCT USED FOR UNKNOWN INDICATION
     Dosage: 100/25 MG
     Route: 065
  3. MOVICOL                            /01749801/ [Concomitant]
     Indication: PRODUCT USED FOR UNKNOWN INDICATION
     Dosage: UNK
     Route: 065
  4. SECTRAL [Concomitant]
     Active Substance: ACEBUTOLOL HYDROCHLORIDE
     Indication: PRODUCT USED FOR UNKNOWN INDICATION
     Dosage: 200 MG, UNK
     Route: 065
  5. AZILECT [Interacting]
     Active Substance: RASAGILINE MESYLATE
     Indication: PARKINSON^S DISEASE
     Dosage: 1 DF, DAILY
     Route: 048
  6. PAROXETINE ARROW 20 MG FILM-COATED TABLETS [Suspect]
     Active Substance: PAROXETINE\PAROXETINE HYDROCHLORIDE
     Indication: DEPRESSION
     Dosage: 1 DF, DAILY
     Route: 048
     Dates: start: 20141120, end: 20141212

REACTIONS (5)
  - Drug interaction [Recovered/Resolved]
  - Confusional state [Unknown]
  - Pulmonary embolism [Unknown]
  - Serotonin syndrome [Recovering/Resolving]
  - Hyperhidrosis [Recovering/Resolving]

NARRATIVE: CASE EVENT DATE: 20141121
